FAERS Safety Report 19083943 (Version 2)
Quarter: 2021Q2

REPORT INFORMATION
  Report Type: Spontaneous
  Country: GB (occurrence: GB)
  Receive Date: 20210401
  Receipt Date: 20210409
  Transmission Date: 20210717
  Serious: Yes (Other)
  Sender: FDA-Public Use
  Company Number: GB-APOTEX-2021AP008055

PATIENT
  Sex: Female

DRUGS (1)
  1. SEROXAT [Suspect]
     Active Substance: PAROXETINE HYDROCHLORIDE
     Indication: PRODUCT USED FOR UNKNOWN INDICATION
     Dosage: 20 MILLIGRAM
     Route: 065
     Dates: start: 2001

REACTIONS (8)
  - Alopecia [Unknown]
  - Cardiac flutter [Unknown]
  - Vision blurred [Unknown]
  - Fatigue [Unknown]
  - Asthenopia [Unknown]
  - Liver disorder [Unknown]
  - Blood iron decreased [Unknown]
  - Dry mouth [Unknown]
